FAERS Safety Report 17171587 (Version 2)
Quarter: 2020Q1

REPORT INFORMATION
  Report Type: Spontaneous
  Country: IL (occurrence: IL)
  Receive Date: 20191218
  Receipt Date: 20200108
  Transmission Date: 20200409
  Serious: No
  Sender: FDA-Public Use
  Company Number: IL-JNJFOC-20191221269

PATIENT

DRUGS (2)
  1. AMIODACORE [Concomitant]
     Active Substance: AMIODARONE
     Indication: HEART RATE ABNORMAL
  2. RIVAROXABAN [Suspect]
     Active Substance: RIVAROXABAN
     Indication: ATRIAL FIBRILLATION
     Route: 048

REACTIONS (2)
  - Tremor [Unknown]
  - Visual impairment [Unknown]
